FAERS Safety Report 11048979 (Version 4)
Quarter: 2016Q3

REPORT INFORMATION
  Report Type: Spontaneous
  Country: US (occurrence: US)
  Receive Date: 20150420
  Receipt Date: 20160708
  Transmission Date: 20161109
  Serious: Yes (Disabling, Other)
  Sender: FDA-Public Use
  Company Number: US-009507513-1504USA009844

PATIENT
  Sex: Male

DRUGS (3)
  1. PROPECIA [Suspect]
     Active Substance: FINASTERIDE
     Indication: ALOPECIA
     Dosage: 1 MG, QD
     Route: 048
     Dates: start: 200808, end: 2009
  2. FINASTERIDE. [Suspect]
     Active Substance: FINASTERIDE
     Indication: ALOPECIA
     Dosage: 5 MG, UNKNOWN
     Route: 048
     Dates: start: 200612, end: 200906
  3. FINASTERIDE. [Suspect]
     Active Substance: FINASTERIDE
     Indication: ALOPECIA
     Dosage: 5 MG, UNKNOWN
     Route: 048
     Dates: start: 200911, end: 201310

REACTIONS (19)
  - Sensory loss [Unknown]
  - Penis injury [Not Recovered/Not Resolved]
  - Endocrine disorder [Not Recovered/Not Resolved]
  - Loss of libido [Unknown]
  - Disturbance in attention [Unknown]
  - Nerve compression [Unknown]
  - Penile size reduced [Unknown]
  - Fall [Unknown]
  - Semen volume decreased [Unknown]
  - Brain injury [Not Recovered/Not Resolved]
  - Ejaculation disorder [Unknown]
  - Depression [Unknown]
  - Psychological trauma [Unknown]
  - Hormone level abnormal [Not Recovered/Not Resolved]
  - Erectile dysfunction [Not Recovered/Not Resolved]
  - Testicular disorder [Unknown]
  - Back injury [Unknown]
  - Sexual dysfunction [Not Recovered/Not Resolved]
  - Hypoaesthesia [Unknown]

NARRATIVE: CASE EVENT DATE: 200810
